FAERS Safety Report 25346717 (Version 1)
Quarter: 2025Q2

REPORT INFORMATION
  Report Type: Spontaneous
  Country: HK (occurrence: HK)
  Receive Date: 20250522
  Receipt Date: 20250522
  Transmission Date: 20250716
  Serious: Yes (Death, Other)
  Sender: RANBAXY
  Company Number: HK-SUN PHARMACEUTICAL INDUSTRIES LTD-2025RR-508616

PATIENT
  Age: 10 Decade
  Sex: Female
  Weight: 40 kg

DRUGS (1)
  1. ACETAMINOPHEN [Suspect]
     Active Substance: ACETAMINOPHEN
     Indication: Procedural pain
     Dosage: 1 GRAM, 4 TIMES DAILY
     Route: 048

REACTIONS (2)
  - Drug level above therapeutic [Fatal]
  - Hepatic failure [Fatal]
